FAERS Safety Report 4573019-8 (Version None)
Quarter: 2005Q1

REPORT INFORMATION
  Report Type: 
  Country: None (occurrence: None)
  Receive Date: 20050204
  Receipt Date: 20050121
  Transmission Date: 20050727
  Serious: No
  Sender: FDA-Public Use
  Company Number: 9901

PATIENT
  Age: 34 Year
  Sex: Female

DRUGS (4)
  1. METHOTREXATE [Suspect]
     Indication: ARTHROPATHY
     Dosage: 7.5 MG WEEKLY PO
     Route: 048
     Dates: start: 19950701, end: 19971201
  2. METHOTREXATE [Suspect]
     Indication: SYSTEMIC LUPUS ERYTHEMATOSUS
     Dosage: 7.5 MG WEEKLY PO
     Route: 048
     Dates: start: 19950701, end: 19971201
  3. PREDNISONE [Concomitant]
  4. INDOMETHACIN [Concomitant]

REACTIONS (5)
  - DYSPNOEA EXERTIONAL [None]
  - GASTROINTESTINAL DISORDER [None]
  - NECROSIS [None]
  - PULMONARY HYPERTENSION [None]
  - RHEUMATOID NODULE [None]
